FAERS Safety Report 7067498-4 (Version None)
Quarter: 2010Q4

REPORT INFORMATION
  Report Type: 
  Country: None (occurrence: None)
  Receive Date: 20101028
  Receipt Date: 20101019
  Transmission Date: 20110411
  Serious: Yes (Other)
  Sender: FDA-Public Use
  Company Number: JP-JNJFOC-20101006481

PATIENT

DRUGS (1)
  1. DUROTEP MT [Suspect]
     Indication: CANCER PAIN
     Route: 062

REACTIONS (5)
  - DECREASED APPETITE [None]
  - DISCOMFORT [None]
  - HALLUCINATION [None]
  - PYREXIA [None]
  - WRONG TECHNIQUE IN DRUG USAGE PROCESS [None]
